FAERS Safety Report 8469516-5 (Version None)
Quarter: 2012Q2

REPORT INFORMATION
  Report Type: 
  Country: None (occurrence: None)
  Receive Date: 20120323
  Receipt Date: 20110913
  Transmission Date: 20120825
  Serious: Yes (Hospitalization)
  Sender: FDA-Public Use
  Company Number: 163-21880-11081842

PATIENT
  Age: 80 Year
  Sex: Male
  Weight: 87.9978 kg

DRUGS (17)
  1. HYDROCHLOROTHIAZIDE (HYDROCHLOROTHIAZIDE) (CAPSULES) [Concomitant]
  2. DEXAMETHASONE [Concomitant]
  3. LASIX [Concomitant]
  4. CLARITIN [Concomitant]
  5. SOLU-CORTEF [Concomitant]
  6. DIPHENHYDRAMINE (DIPHENHYDRAMINE) (CAPSULES) [Concomitant]
  7. RAMIPRIL (RAMIPRIL) (CAPSULES) [Concomitant]
  8. DEXTROMETHORPHAN-GUAIFENESIN (GUAIFENESIN W/DEXTROMETHORPHAN) (TABLETS [Concomitant]
  9. RAPAFLO (SILODOSIN) [Concomitant]
  10. ALBUTEROL [Concomitant]
  11. REVLIMID [Suspect]
     Indication: MULTIPLE MYELOMA
     Dosage: 25 MG, DAILY X 21 DAYS OF 28, PO
     Route: 048
     Dates: start: 20110701
  12. LEVOTHYROXINE (LEVOTHYROXINE) (TABLETS) [Concomitant]
  13. ACETAMINOPHEN [Concomitant]
  14. LEVOFLOXACIN [Concomitant]
  15. NADOLOL (NADOLOL) (TABLETS) [Concomitant]
  16. VELCADE [Suspect]
     Indication: MULTIPLE MYELOMA
     Dosage: 2.6 MG, D1, 4, 6, 11, INJ
     Dates: start: 20110906, end: 20110913
  17. IMMUNE GLOBULIN NOS [Concomitant]

REACTIONS (5)
  - PNEUMONIA [None]
  - HEART RATE DECREASED [None]
  - BLOOD PRESSURE DECREASED [None]
  - RASH ERYTHEMATOUS [None]
  - WHITE BLOOD CELL COUNT DECREASED [None]
